FAERS Safety Report 20962364 (Version 2)
Quarter: 2022Q3

REPORT INFORMATION
  Report Type: Report from Study
  Country: DE (occurrence: DE)
  Receive Date: 20220615
  Receipt Date: 20220630
  Transmission Date: 20221026
  Serious: Yes (Hospitalization, Other)
  Sender: FDA-Public Use
  Company Number: DE-NOVARTISPH-PHHY2017DE201644

PATIENT
  Age: 39 Year
  Sex: Male

DRUGS (10)
  1. COSENTYX [Interacting]
     Active Substance: SECUKINUMAB
     Indication: Psoriatic arthropathy
     Dosage: 300 MG
     Route: 065
     Dates: start: 20160919
  2. COSENTYX [Interacting]
     Active Substance: SECUKINUMAB
     Dosage: 300 MG
     Route: 065
  3. COSENTYX [Interacting]
     Active Substance: SECUKINUMAB
     Dosage: 300 MG
     Route: 065
     Dates: end: 20161107
  4. COSENTYX [Interacting]
     Active Substance: SECUKINUMAB
     Dosage: 300 MG (PRE FILLED PEN)
     Route: 065
     Dates: start: 20161108, end: 20171007
  5. COSENTYX [Interacting]
     Active Substance: SECUKINUMAB
     Dosage: 300 MG (INTERMEDIATE TREATMENT BREAK)
     Route: 065
     Dates: start: 20171008, end: 20171108
  6. COSENTYX [Interacting]
     Active Substance: SECUKINUMAB
     Dosage: 300 MG
     Route: 058
     Dates: start: 20171109, end: 20200108
  7. COSENTYX [Interacting]
     Active Substance: SECUKINUMAB
     Dosage: 300 MG
     Route: 058
     Dates: start: 20200108
  8. COSENTYX [Interacting]
     Active Substance: SECUKINUMAB
     Dosage: 300 MG
     Route: 065
     Dates: start: 20200408, end: 20210208
  9. COSENTYX [Interacting]
     Active Substance: SECUKINUMAB
     Dosage: 300 MG
     Route: 065
     Dates: start: 20210209, end: 20210407
  10. METHOTREXATE [Interacting]
     Active Substance: METHOTREXATE
     Indication: Product used for unknown indication
     Dosage: UNK
     Route: 065

REACTIONS (7)
  - Erysipelas [Recovered/Resolved]
  - Deep vein thrombosis [Recovered/Resolved]
  - Nasal congestion [Recovered/Resolved]
  - Abscess [Recovered/Resolved]
  - Tenosynovitis [Recovered/Resolved]
  - Nausea [Recovered/Resolved]
  - Drug ineffective [Recovered/Resolved]

NARRATIVE: CASE EVENT DATE: 20171204
